FAERS Safety Report 25534100 (Version 1)
Quarter: 2025Q3

REPORT INFORMATION
  Report Type: Spontaneous
  Country: US (occurrence: US)
  Receive Date: 20250709
  Receipt Date: 20250709
  Transmission Date: 20251020
  Serious: Yes (Hospitalization, Other)
  Sender: AUROBINDO
  Company Number: US-MLMSERVICE-20250618-PI547380-00215-1

PATIENT
  Age: 28 Year
  Sex: Male

DRUGS (3)
  1. MESALAMINE [Suspect]
     Active Substance: MESALAMINE
     Indication: Crohn^s disease
     Route: 065
     Dates: start: 201505, end: 2021
  2. OXYCODONE [Suspect]
     Active Substance: OXYCODONE
     Indication: Pain management
     Route: 065
  3. PREDNISONE [Concomitant]
     Active Substance: PREDNISONE
     Indication: Crohn^s disease
     Route: 065
     Dates: start: 201505

REACTIONS (9)
  - Drug use disorder [Recovering/Resolving]
  - Pancreatitis acute [Unknown]
  - Flank pain [Recovering/Resolving]
  - Pain [Recovering/Resolving]
  - Haematuria [Recovering/Resolving]
  - Nausea [Recovering/Resolving]
  - Vomiting [Recovering/Resolving]
  - Diarrhoea [Recovering/Resolving]
  - Drug withdrawal syndrome [Recovering/Resolving]

NARRATIVE: CASE EVENT DATE: 20210101
